FAERS Safety Report 6824745-9 (Version None)
Quarter: 2010Q3

REPORT INFORMATION
  Report Type: 
  Country: None (occurrence: None)
  Receive Date: 20100708
  Receipt Date: 20061116
  Transmission Date: 20110219
  Serious: No
  Sender: FDA-Public Use
  Company Number: US-PFIZER INC-2006143971

PATIENT
  Sex: Male
  Weight: 113.4 kg

DRUGS (7)
  1. CHANTIX [Suspect]
     Indication: SMOKING CESSATION THERAPY
     Dates: start: 20061024
  2. ATENOLOL [Concomitant]
  3. LOTREL [Concomitant]
  4. TRICOR [Concomitant]
     Indication: BLOOD CHOLESTEROL
  5. CITALOPRAM HYDROBROMIDE [Concomitant]
     Indication: DEPRESSION
  6. SOLU-MEDROL [Concomitant]
     Indication: HYPERHIDROSIS
  7. CYTOXAN [Concomitant]

REACTIONS (6)
  - DIZZINESS [None]
  - EYE IRRITATION [None]
  - HYPERHIDROSIS [None]
  - HYPOAESTHESIA [None]
  - MYDRIASIS [None]
  - NAUSEA [None]
